FAERS Safety Report 11382338 (Version 1)
Quarter: 2015Q3

REPORT INFORMATION
  Report Type: Spontaneous
  Country: US (occurrence: US)
  Receive Date: 20150814
  Receipt Date: 20150814
  Transmission Date: 20151125
  Serious: Yes (Other)
  Sender: FDA-Public Use
  Company Number: US-009507513-1508USA004028

PATIENT
  Sex: Female

DRUGS (10)
  1. NEXIUM [Concomitant]
     Active Substance: ESOMEPRAZOLE MAGNESIUM
  2. PANCRELIPASE. [Concomitant]
     Active Substance: PANCRELIPASE
  3. CLONIDINE. [Concomitant]
     Active Substance: CLONIDINE
  4. ZETIA [Suspect]
     Active Substance: EZETIMIBE
     Indication: HYPERLIPIDAEMIA
     Dosage: 10 MG, DAILY AT BEDTIME
     Route: 048
  5. INSULIN [Concomitant]
     Active Substance: INSULIN NOS
  6. GABAPENTIN. [Concomitant]
     Active Substance: GABAPENTIN
  7. NORVASC [Concomitant]
     Active Substance: AMLODIPINE BESYLATE
  8. COREG [Concomitant]
     Active Substance: CARVEDILOL
  9. COZAAR [Concomitant]
     Active Substance: LOSARTAN POTASSIUM
  10. EFFEXOR [Concomitant]
     Active Substance: VENLAFAXINE HYDROCHLORIDE

REACTIONS (2)
  - Pancreatitis [Not Recovered/Not Resolved]
  - Diarrhoea [Not Recovered/Not Resolved]
